FAERS Safety Report 24936164 (Version 1)
Quarter: 2025Q1

REPORT INFORMATION
  Report Type: Spontaneous
  Country: FR (occurrence: FR)
  Receive Date: 20250206
  Receipt Date: 20250206
  Transmission Date: 20250409
  Serious: Yes (Other)
  Sender: ACCORD
  Company Number: None

PATIENT
  Age: 78 Year
  Sex: Female
  Weight: 55 kg

DRUGS (4)
  1. OXYBUTYNIN [Suspect]
     Active Substance: OXYBUTYNIN
     Indication: Product used for unknown indication
     Dosage: 5MG 2/D
     Dates: start: 2023
  2. BISOPROLOL [Suspect]
     Active Substance: BISOPROLOL
     Indication: Hypertension
     Dates: start: 2023
  3. LOXAPINE [Suspect]
     Active Substance: LOXAPINE
     Indication: Psychotic disorder
     Dosage: 15-15-15
     Dates: start: 2023
  4. ZUCLOPENTHIXOL [Suspect]
     Active Substance: ZUCLOPENTHIXOL
     Indication: Psychotic disorder
     Dosage: 30-30-30, 2 PERCENT, ORAL SOLUTION DROPS
     Dates: start: 2023

REACTIONS (3)
  - Hypotension [Recovering/Resolving]
  - Malaise [Recovering/Resolving]
  - Fall [Recovering/Resolving]

NARRATIVE: CASE EVENT DATE: 20241201
